FAERS Safety Report 7918612-7 (Version None)
Quarter: 2011Q4

REPORT INFORMATION
  Report Type: 
  Country: None (occurrence: None)
  Receive Date: 20111116
  Receipt Date: 20111107
  Transmission Date: 20120403
  Serious: Yes (Hospitalization)
  Sender: FDA-Public Use
  Company Number: US-PFIZER INC-2011272179

PATIENT
  Sex: Female
  Weight: 90.703 kg

DRUGS (7)
  1. ACETAMINOPHEN AND HYDROCODONE BITARTRATE [Concomitant]
     Indication: NEURALGIA
     Dosage: 5/650MG, 4X/DAY
  2. LIPITOR [Suspect]
     Indication: BLOOD CHOLESTEROL ABNORMAL
     Dosage: 20 MG, DAILY
     Route: 048
  3. TEGRETOL [Concomitant]
     Indication: NEURALGIA
     Dosage: 400 MG, 4X/DAY
  4. NEURONTIN [Concomitant]
     Indication: NEURALGIA
     Dosage: 800 MG, 2X/DAY
  5. NEOSPORIN [Suspect]
     Indication: THERMAL BURN
     Dosage: UNK
     Route: 061
     Dates: start: 20110101
  6. LORAZEPAM [Concomitant]
     Indication: NEURALGIA
     Dosage: 1 MG, 4X/DAY
  7. METOPROLOL [Concomitant]
     Indication: HYPERTENSION
     Dosage: 25 MG, 2X/DAY

REACTIONS (2)
  - HYPERSENSITIVITY [None]
  - CIRCUMSTANCE OR INFORMATION CAPABLE OF LEADING TO MEDICATION ERROR [None]
